FAERS Safety Report 11185784 (Version 1)
Quarter: 2015Q2

REPORT INFORMATION
  Report Type: Spontaneous
  Country: CN (occurrence: CN)
  Receive Date: 20150612
  Receipt Date: 20150612
  Transmission Date: 20150821
  Serious: Yes (Hospitalization, Other)
  Sender: FDA-Public Use
  Company Number: CN-B.I. PHARMACEUTICALS,INC./RIDGEFIELD-2015-BI-31279CS

PATIENT
  Age: 84 Year
  Sex: Female

DRUGS (1)
  1. ATROVENT [Suspect]
     Active Substance: IPRATROPIUM BROMIDE
     Indication: LUNG DISORDER
     Dosage: STRENGTH: 250-500 MCG; DAILY DOSE: 500-1000 MCG
     Route: 055
     Dates: start: 201502, end: 201502

REACTIONS (3)
  - Angle closure glaucoma [Unknown]
  - Blindness transient [Recovered/Resolved]
  - Encephalitis [Unknown]

NARRATIVE: CASE EVENT DATE: 201502
